FAERS Safety Report 5586377-2 (Version None)
Quarter: 2008Q1

REPORT INFORMATION
  Report Type: 
  Country: None (occurrence: None)
  Receive Date: 20080110
  Receipt Date: 20080102
  Transmission Date: 20080703
  Serious: Yes (Hospitalization)
  Sender: FDA-Public Use
  Company Number: PHBS2008NO00489

PATIENT
  Age: 78 Year
  Sex: Female

DRUGS (11)
  1. EXELON [Suspect]
     Indication: DEMENTIA
     Dosage: 6 MG, QD
     Route: 048
     Dates: start: 20071106
  2. EVISTA [Concomitant]
  3. DUPHALAC [Concomitant]
  4. NEXIUM [Concomitant]
  5. AKINETON [Concomitant]
     Dosage: 2 MG, QD
     Dates: start: 20070501, end: 20071212
  6. DUROFERON [Concomitant]
  7. VI-SIBLIN [Concomitant]
  8. ZOPICLONE [Concomitant]
  9. TRILAFON [Suspect]
     Indication: HALLUCINATION
     Dosage: 8 MG, QD
     Route: 048
     Dates: start: 20070501, end: 20071215
  10. CIPRALEX [Suspect]
     Indication: DEPRESSION
     Dosage: 10 MG/D
     Route: 065
     Dates: start: 20070101, end: 20071214
  11. SEROQUEL [Suspect]
     Indication: HALLUCINATION
     Dosage: 50 MG/D
     Route: 065
     Dates: start: 20070501, end: 20071215

REACTIONS (5)
  - BALANCE DISORDER [None]
  - BRADYKINESIA [None]
  - COGNITIVE DISORDER [None]
  - DRUG INTERACTION [None]
  - EXTRAPYRAMIDAL DISORDER [None]
